FAERS Safety Report 5933469-1 (Version None)
Quarter: 2008Q4

REPORT INFORMATION
  Report Type: 
  Country: None (occurrence: None)
  Receive Date: 20081024
  Receipt Date: 20081014
  Transmission Date: 20090506
  Serious: Yes (Disabling, Other)
  Sender: FDA-Public Use
  Company Number: 035575

PATIENT
  Age: 62 Year
  Sex: Female

DRUGS (4)
  1. ALENDRONATE SODIUM [Suspect]
     Dates: start: 19960101, end: 20060601
  2. ESTROGEN REPLACEMENT THERAPY [Concomitant]
  3. RALOXIFENE HCL [Concomitant]
  4. PREDNISONE [Concomitant]

REACTIONS (5)
  - FRACTURE [None]
  - IMPAIRED HEALING [None]
  - LOW TURNOVER OSTEOPATHY [None]
  - OSTEOPOROSIS POSTMENOPAUSAL [None]
  - PAIN IN EXTREMITY [None]
